FAERS Safety Report 10078921 (Version 3)
Quarter: 2014Q2

REPORT INFORMATION
  Report Type: Spontaneous
  Country: IT (occurrence: None)
  Receive Date: 20140411
  Receipt Date: 20140514
  Transmission Date: 20141212
  Serious: Yes (Death, Hospitalization)
  Sender: FDA-Public Use
  Company Number: 2274534

PATIENT
  Age: 75 Year
  Sex: Male
  Weight: 78 kg

DRUGS (3)
  1. CARBOPLATIN [Suspect]
     Indication: LUNG NEOPLASM MALIGNANT
     Dosage: CYCLICAL
     Route: 042
     Dates: start: 20140212, end: 20140212
  2. ALIMTA [Suspect]
     Indication: LUNG NEOPLASM MALIGNANT
     Dosage: CYCLICAL
     Route: 042
     Dates: start: 20140122, end: 20140212
  3. CISPLATIN [Concomitant]
     Indication: LUNG NEOPLASM MALIGNANT
     Dosage: 60 MG/M2 MILLIGRAM(S)/SQ.METER
     Dates: start: 20140122

REACTIONS (12)
  - Nephropathy toxic [None]
  - Azotaemia [None]
  - Bone marrow toxicity [None]
  - Renal failure [None]
  - Hepatic failure [None]
  - Blood glucose increased [None]
  - Asthenia [None]
  - Decreased appetite [None]
  - Acute pulmonary oedema [None]
  - Pulmonary congestion [None]
  - Atelectasis [None]
  - Pulmonary haemorrhage [None]
